FAERS Safety Report 8260112-1 (Version None)
Quarter: 2012Q2

REPORT INFORMATION
  Report Type: 
  Country: None (occurrence: None)
  Receive Date: 20120404
  Receipt Date: 20120327
  Transmission Date: 20120825
  Serious: Yes (Other)
  Sender: FDA-Public Use
  Company Number: CA-AMGEN-CANSP2011056336

PATIENT
  Age: 59 Year
  Sex: Male
  Weight: 72.109 kg

DRUGS (1)
  1. PROLIA [Suspect]
     Indication: OSTEOPOROSIS
     Dosage: 60 MG, Q6MO
     Route: 058
     Dates: start: 20111028

REACTIONS (7)
  - NAUSEA [None]
  - OSTEONECROSIS OF JAW [None]
  - VOMITING [None]
  - DIARRHOEA [None]
  - HEADACHE [None]
  - MYALGIA [None]
  - ASTHENIA [None]
